FAERS Safety Report 7470458-2 (Version None)
Quarter: 2011Q2

REPORT INFORMATION
  Report Type: 
  Country: None (occurrence: None)
  Receive Date: 20110510
  Receipt Date: 20110427
  Transmission Date: 20111010
  Serious: Yes (Hospitalization)
  Sender: FDA-Public Use
  Company Number: JP-MERCK-1105USA01236

PATIENT
  Age: 69 Year
  Sex: Female

DRUGS (3)
  1. PREDNISOLONE [Concomitant]
     Indication: ASTHMA
     Dosage: DOSING FREQUENCY UNKNOWN, SINGLE DOSE
     Route: 048
  2. CODEINE [Concomitant]
     Indication: ASTHMA
     Dosage: DAILY DOSAGE UNKNOWN
     Route: 048
  3. SINGULAIR [Suspect]
     Indication: ASTHMA
     Dosage: DAILY DOSAGE UNKNOWN
     Route: 048

REACTIONS (1)
  - TOXIC EPIDERMAL NECROLYSIS [None]
